FAERS Safety Report 12120280 (Version 2)
Quarter: 2016Q1

REPORT INFORMATION
  Report Type: Report from Study
  Country: US (occurrence: US)
  Receive Date: 20160226
  Receipt Date: 20160302
  Transmission Date: 20160526
  Serious: No
  Sender: FDA-Public Use
  Company Number: PHEH2016US004495

PATIENT
  Age: 30 Year
  Sex: Female
  Weight: 97.96 kg

DRUGS (1)
  1. TOBI PODHALER [Suspect]
     Active Substance: TOBRAMYCIN
     Indication: PROPHYLAXIS
     Dosage: 112 MG, BID
     Route: 055
     Dates: start: 20160216

REACTIONS (5)
  - Product use issue [Unknown]
  - Nightmare [Unknown]
  - Aphonia [Recovered/Resolved]
  - Dysphonia [Not Recovered/Not Resolved]
  - Pulmonary function test decreased [Not Recovered/Not Resolved]

NARRATIVE: CASE EVENT DATE: 20160216
